FAERS Safety Report 5933738-5 (Version None)
Quarter: 2008Q4

REPORT INFORMATION
  Report Type: 
  Country: None (occurrence: None)
  Receive Date: 20081029
  Receipt Date: 20081017
  Transmission Date: 20090506
  Serious: Yes (Disabling)
  Sender: FDA-Public Use
  Company Number: GB-ROCHE-589279

PATIENT
  Sex: Female
  Weight: 49 kg

DRUGS (5)
  1. BONIVA [Suspect]
     Indication: OSTEOPOROSIS PROPHYLAXIS
     Dosage: PATIENT RECEIVED 18 DOSES
     Route: 048
     Dates: start: 20061201, end: 20080501
  2. RISEDRONATE SODIUM [Suspect]
     Indication: OSTEOPOROSIS PROPHYLAXIS
     Route: 048
     Dates: start: 20030501, end: 20061201
  3. PREDNISOLONE [Concomitant]
     Indication: POLYMYALGIA RHEUMATICA
     Route: 048
     Dates: start: 19990101
  4. LANSOPRAZOLE [Concomitant]
     Route: 048
  5. CORTICOSTEROIDS [Concomitant]
     Indication: POLYMYALGIA RHEUMATICA
     Route: 048
     Dates: start: 19990101

REACTIONS (1)
  - OSTEONECROSIS [None]
